FAERS Safety Report 7376222-7 (Version None)
Quarter: 2011Q1

REPORT INFORMATION
  Report Type: 
  Country: None (occurrence: None)
  Receive Date: 20110325
  Receipt Date: 20110316
  Transmission Date: 20110831
  Serious: Yes (Hospitalization)
  Sender: FDA-Public Use
  Company Number: FR-ABBOTT-11P-056-0712597-00

PATIENT
  Sex: Female

DRUGS (6)
  1. PYOSTACINE [Suspect]
     Indication: PRODUCT USED FOR UNKNOWN INDICATION
     Route: 048
     Dates: start: 20110123, end: 20110128
  2. ZECLAR [Suspect]
  3. LEVOTHYROX [Concomitant]
     Indication: PRODUCT USED FOR UNKNOWN INDICATION
  4. CETIRIZINE HCL [Suspect]
     Indication: PRODUCT USED FOR UNKNOWN INDICATION
     Route: 048
     Dates: start: 20110123, end: 20110128
  5. ZOCOR [Concomitant]
     Indication: PRODUCT USED FOR UNKNOWN INDICATION
  6. ZECLAR [Suspect]
     Indication: PHARYNGITIS
     Route: 048
     Dates: start: 20110101

REACTIONS (14)
  - BLOOD ALBUMIN DECREASED [None]
  - CYTOLYTIC HEPATITIS [None]
  - ANGIOPATHY [None]
  - PYREXIA [None]
  - URTICARIA [None]
  - COMPLEMENT FACTOR C3 INCREASED [None]
  - GLOBULINS INCREASED [None]
  - ACUTE GENERALISED EXANTHEMATOUS PUSTULOSIS [None]
  - DRUG RASH WITH EOSINOPHILIA AND SYSTEMIC SYMPTOMS [None]
  - BLOOD IMMUNOGLOBULIN A INCREASED [None]
  - LYMPHOMA [None]
  - COMPLEMENT FACTOR INCREASED [None]
  - INFLAMMATION [None]
  - PURPURA [None]
